FAERS Safety Report 23422023 (Version 4)
Quarter: 2024Q1

REPORT INFORMATION
  Report Type: Spontaneous
  Country: US (occurrence: US)
  Receive Date: 20240119
  Receipt Date: 20240322
  Transmission Date: 20240409
  Serious: Yes (Hospitalization, Other)
  Sender: FDA-Public Use
  Company Number: US-PIRAMAL CRITICAL CARE LIMITED-2024-PPL-000022

PATIENT

DRUGS (7)
  1. GABLOFEN [Suspect]
     Active Substance: BACLOFEN
     Indication: Muscle spasticity
     Dosage: UNK
     Route: 037
  2. GABLOFEN [Suspect]
     Active Substance: BACLOFEN
     Dosage: 2000 MCG/ML AT 434.7 MCG/DAY)
     Route: 037
  3. GABLOFEN [Suspect]
     Active Substance: BACLOFEN
     Dosage: 2000 MCG/ML AT 120 MCG/DAY
     Route: 037
  4. GABLOFEN [Suspect]
     Active Substance: BACLOFEN
     Dosage: 120 MICROGRAM
     Route: 037
  5. LIORESAL [Concomitant]
     Active Substance: BACLOFEN
     Indication: Product used for unknown indication
     Dosage: UNK
     Route: 037
  6. CLONIDINE [Concomitant]
     Active Substance: CLONIDINE
     Indication: Product used for unknown indication
     Dosage: UNK
     Route: 048
  7. BACLOFEN [Concomitant]
     Active Substance: BACLOFEN
     Indication: Product used for unknown indication
     Dosage: UNK
     Route: 048

REACTIONS (11)
  - Withdrawal syndrome [Unknown]
  - Dyskinesia [Unknown]
  - Terminal state [Unknown]
  - Hypersomnia [Unknown]
  - Irritability [Unknown]
  - Hyperhidrosis [Unknown]
  - Constipation [Unknown]
  - Loss of consciousness [Unknown]
  - Overdose [Unknown]
  - Pruritus [Unknown]
  - Tachycardia [Unknown]

NARRATIVE: CASE EVENT DATE: 20230924
